FAERS Safety Report 10602964 (Version 1)
Quarter: 2014Q4

REPORT INFORMATION
  Report Type: Spontaneous
  Country: GB (occurrence: GB)
  Receive Date: 20141124
  Receipt Date: 20141124
  Transmission Date: 20150529
  Serious: Yes (Hospitalization, Other)
  Sender: FDA-Public Use
  Company Number: GB-WATSON-2014-25178

PATIENT
  Sex: Male

DRUGS (2)
  1. PREDNISOLONE (UNKNOWN) [Suspect]
     Active Substance: PREDNISOLONE
     Dosage: UNK, HIGH DOSE THAT WAS TAPERED DOWN TO NOTHING
     Route: 065
  2. PREDNISOLONE (UNKNOWN) [Suspect]
     Active Substance: PREDNISOLONE
     Indication: PRODUCT USED FOR UNKNOWN INDICATION
     Dosage: UNK, PREDNISOLONE RAN OUT AND DOCTOR DID NOT PRESCRIBE ANY MORE DRUG
     Route: 065
     Dates: start: 20140829, end: 20140922

REACTIONS (1)
  - Steroid withdrawal syndrome [Unknown]
